FAERS Safety Report 11280999 (Version 1)
Quarter: 2015Q3

REPORT INFORMATION
  Report Type: Spontaneous
  Country: US (occurrence: US)
  Receive Date: 20150717
  Receipt Date: 20150717
  Transmission Date: 20151125
  Serious: No
  Sender: FDA-Public Use
  Company Number: US-BAYER-2015-381689

PATIENT
  Age: 63 Year
  Sex: Female

DRUGS (10)
  1. ALBUTEROL. [Concomitant]
     Active Substance: ALBUTEROL
  2. CEPHALEXIN. [Concomitant]
     Active Substance: CEPHALEXIN
  3. CLINDAMYCIN [Concomitant]
     Active Substance: CLINDAMYCIN\CLINDAMYCIN PHOSPHATE
  4. QVAR [Concomitant]
     Active Substance: BECLOMETHASONE DIPROPIONATE
  5. STIVARGA [Suspect]
     Active Substance: REGORAFENIB
     Dosage: TAKE 4 TABLETS BY MOUTH EVERY DAY FOR 21 DAYS
     Route: 048
  6. LISINOPRIL. [Concomitant]
     Active Substance: LISINOPRIL
  7. SERTRALINE [Concomitant]
     Active Substance: SERTRALINE HYDROCHLORIDE
  8. DESLORATADINE. [Concomitant]
     Active Substance: DESLORATADINE
  9. METOPROLOL [Concomitant]
     Active Substance: METOPROLOL
  10. PREDNISONE. [Concomitant]
     Active Substance: PREDNISONE

REACTIONS (1)
  - Stomatitis [Recovered/Resolved]
